FAERS Safety Report 7562628-X (Version None)
Quarter: 2011Q2

REPORT INFORMATION
  Report Type: 
  Country: None (occurrence: None)
  Receive Date: 20110622
  Receipt Date: 20110608
  Transmission Date: 20111010
  Serious: Yes (Life-Threatening, Hospitalization)
  Sender: FDA-Public Use
  Company Number: US-MYLANLABS-2011S1011912

PATIENT
  Age: 59 Year

DRUGS (2)
  1. FENTANYL-100 [Suspect]
     Dosage: 100 MICROG/H TRANSDERMAL PATCH
     Route: 048
  2. PROCET                             /01554201/ [Concomitant]
     Route: 065

REACTIONS (3)
  - LOSS OF CONSCIOUSNESS [None]
  - BRADYCARDIA [None]
  - INCORRECT ROUTE OF DRUG ADMINISTRATION [None]
